FAERS Safety Report 5147056-9 (Version None)
Quarter: 2006Q4

REPORT INFORMATION
  Report Type: 
  Country: None (occurrence: None)
  Receive Date: 20061103
  Receipt Date: 20061024
  Transmission Date: 20070319
  Serious: Yes (Hospitalization)
  Sender: FDA-Public Use
  Company Number: 2006130232

PATIENT
  Age: 87 Year
  Sex: Female

DRUGS (5)
  1. LYRICA [Suspect]
     Indication: NEURALGIA
     Dosage: (25 MG), ORAL
     Route: 048
     Dates: start: 20051124, end: 20051201
  2. OMEPRAZOLE [Concomitant]
  3. FUROSEMIDE [Concomitant]
  4. LANOXIN [Concomitant]
  5. MARCUMAR [Concomitant]

REACTIONS (3)
  - APRAXIA [None]
  - CONFUSIONAL STATE [None]
  - HYPERAESTHESIA [None]
